FAERS Safety Report 24940178 (Version 1)
Quarter: 2025Q1

REPORT INFORMATION
  Report Type: Spontaneous
  Country: PT (occurrence: PT)
  Receive Date: 20250207
  Receipt Date: 20250207
  Transmission Date: 20250408
  Serious: Yes (Other)
  Sender: ABBVIE
  Company Number: PT-ABBVIE-6113404

PATIENT

DRUGS (1)
  1. UPADACITINIB [Suspect]
     Active Substance: UPADACITINIB
     Indication: Colitis ulcerative
     Route: 048

REACTIONS (15)
  - Cytomegalovirus colitis [Unknown]
  - Nausea [Unknown]
  - Blood creatine phosphokinase increased [Unknown]
  - Rash [Unknown]
  - Onychomycosis [Unknown]
  - Herpes simplex [Unknown]
  - Tonsillitis [Unknown]
  - Acne [Unknown]
  - Transaminases increased [Unknown]
  - Myalgia [Unknown]
  - Pancytopenia [Unknown]
  - Herpes zoster [Unknown]
  - Respiratory tract infection [Unknown]
  - Headache [Unknown]
  - Dyslipidaemia [Unknown]
